FAERS Safety Report 10944900 (Version 1)
Quarter: 2015Q1

REPORT INFORMATION
  Report Type: Spontaneous
  Country: US (occurrence: US)
  Receive Date: 20150323
  Receipt Date: 20150323
  Transmission Date: 20150721
  Serious: No
  Sender: FDA-Public Use
  Company Number: US-TEVA-510272USA

PATIENT
  Sex: Female

DRUGS (2)
  1. CABERGOLINE. [Suspect]
     Active Substance: CABERGOLINE
     Dosage: .1429 MILLIGRAM DAILY;
     Route: 065
  2. CABERGOLINE. [Suspect]
     Active Substance: CABERGOLINE
     Dosage: .25 MILLIGRAM DAILY;
     Route: 065

REACTIONS (5)
  - Hypoaesthesia [Unknown]
  - Tremor [Unknown]
  - Abdominal pain upper [Unknown]
  - Headache [Unknown]
  - Adverse event [Unknown]
